FAERS Safety Report 10586162 (Version 3)
Quarter: 2015Q2

REPORT INFORMATION
  Report Type: Spontaneous
  Country: IT (occurrence: IT)
  Receive Date: 20141116
  Receipt Date: 20150404
  Transmission Date: 20150821
  Serious: Yes (Other)
  Sender: FDA-Public Use
  Company Number: IT-009507513-1411ITA004289

PATIENT
  Age: 85 Year
  Sex: Female

DRUGS (5)
  1. LOSARTAN POTASSIUM AND HYDROCHLOROTHIAZIDE [Suspect]
     Active Substance: HYDROCHLOROTHIAZIDE\LOSARTAN POTASSIUM
     Indication: ESSENTIAL HYPERTENSION
     Dosage: 100 MG+25MG DAILY
     Route: 048
     Dates: start: 20140101, end: 20140303
  2. DILATREND [Suspect]
     Active Substance: CARVEDILOL
     Indication: ESSENTIAL HYPERTENSION
     Dosage: 6.25 MG, QD
     Route: 048
     Dates: start: 20140101, end: 20140303
  3. COUMADIN [Concomitant]
     Active Substance: WARFARIN SODIUM
     Route: 048
  4. TAPAZOLE [Suspect]
     Active Substance: METHIMAZOLE
     Indication: HYPERTHYROIDISM
     Dosage: TOTAL DAILY DOSE 2.5 MG DAILY
     Route: 048
     Dates: start: 20140101, end: 20140303
  5. CORIPREN [Suspect]
     Active Substance: ENALAPRIL MALEATE\LERCANIDIPINE HYDROCHLORIDE
     Indication: ESSENTIAL HYPERTENSION
     Dosage: 20MG+10 MG TABLET, 1 UNIT DAILY
     Route: 048
     Dates: start: 20140101, end: 20140303

REACTIONS (4)
  - Vertigo [Recovering/Resolving]
  - Hypokalaemia [Recovering/Resolving]
  - Drug ineffective [Recovering/Resolving]
  - Hypertension [Recovering/Resolving]

NARRATIVE: CASE EVENT DATE: 20140304
